FAERS Safety Report 12405857 (Version 9)
Quarter: 2018Q1

REPORT INFORMATION
  Report Type: Report from Study
  Country: AU (occurrence: AU)
  Receive Date: 20160526
  Receipt Date: 20180302
  Transmission Date: 20180508
  Serious: Yes (Hospitalization)
  Sender: FDA-Public Use
  Company Number: AU-ROCHE-1684451

PATIENT
  Age: 64 Year
  Sex: Female
  Weight: 58 kg

DRUGS (14)
  1. PACLITAXEL. [Suspect]
     Active Substance: PACLITAXEL
     Indication: NON-SMALL CELL LUNG CANCER
     Dosage: DATE OF MOST RECENT DOSE PRIOR TO THE FEBRILE NEUTROPENIA: 10/DEC/2015 (DOSE: 320 MG)?DATE OF MOST R
     Route: 042
     Dates: start: 20151120
  2. MAGMIN [Concomitant]
     Active Substance: MAGNESIUM ASPARTATE
     Route: 065
  3. HYDROCHLOROTHIAZIDE/TELMISARTAN [Concomitant]
     Active Substance: HYDROCHLOROTHIAZIDE\TELMISARTAN
     Indication: HYPERTENSION
  4. ALENDRONATE [Concomitant]
     Active Substance: ALENDRONATE SODIUM
  5. RANITIDINE. [Concomitant]
     Active Substance: RANITIDINE
     Indication: PREMEDICATION
     Route: 065
     Dates: start: 20151119, end: 20160302
  6. ESOMEPRAZOLE [Concomitant]
     Active Substance: ESOMEPRAZOLE
  7. BEVACIZUMAB. [Suspect]
     Active Substance: BEVACIZUMAB
     Indication: NON-SMALL CELL LUNG CANCER
     Dosage: DATE OF MOST RECENT DOSE PRIOR TO THE FEBRILE NEUTROPENIA: 10/DEC/2015 (DOSE: 870 MG)?DATE OF MOST R
     Route: 042
     Dates: start: 20151120
  8. LORATADINE. [Concomitant]
     Active Substance: LORATADINE
     Indication: PREMEDICATION
     Route: 065
     Dates: start: 20151120, end: 20160302
  9. ENDONE [Concomitant]
     Active Substance: OXYCODONE HYDROCHLORIDE
     Indication: PAIN MANAGEMENT
  10. CARBOPLATIN. [Suspect]
     Active Substance: CARBOPLATIN
     Indication: NON-SMALL CELL LUNG CANCER
     Dosage: AREA UNDER THE CONCENTRATION-TIME CURVE (AUC) 6 MILLIGRAMS PER MILLILITER PER MINUTE (MG/ML/MIN)?DAT
     Route: 042
     Dates: start: 20151120
  11. AMITRIPTYLINE [Concomitant]
     Active Substance: AMITRIPTYLINE
     Indication: NEURALGIA
  12. NALOXONE/OXYCODONE HYDROCHLORIDE [Concomitant]
     Indication: PAIN MANAGEMENT
     Route: 065
     Dates: start: 20150813, end: 20160124
  13. ATEZOLIZUMAB. [Suspect]
     Active Substance: ATEZOLIZUMAB
     Indication: NON-SMALL CELL LUNG CANCER
     Dosage: DATE OF MOST RECENT DOSE PRIOR TO THE FEBRILE NEUTROPENIA: 10/DEC/2015 (DOSE: 1200 MG)?DATE OF MOST
     Route: 042
     Dates: start: 20151120
  14. PALONOSETRON. [Concomitant]
     Active Substance: PALONOSETRON HYDROCHLORIDE
     Indication: PREMEDICATION
     Route: 065
     Dates: start: 20151120, end: 20160302

REACTIONS (4)
  - Febrile neutropenia [Recovered/Resolved]
  - Diarrhoea [Recovered/Resolved]
  - Vomiting [Recovered/Resolved]
  - Nausea [Recovered/Resolved]

NARRATIVE: CASE EVENT DATE: 20151222
